FAERS Safety Report 5966796-2 (Version None)
Quarter: 2008Q4

REPORT INFORMATION
  Report Type: 
  Country: None (occurrence: None)
  Receive Date: 20081125
  Receipt Date: 20081017
  Transmission Date: 20090506
  Serious: No
  Sender: FDA-Public Use
  Company Number: US-B.I. PHARMACEUTICALS,INC./RIDGEFIELD-2008-BP-16050BP

PATIENT
  Age: 68 Year
  Sex: Male

DRUGS (3)
  1. SPIRIVA [Suspect]
     Indication: CHRONIC OBSTRUCTIVE PULMONARY DISEASE
     Dosage: 18MCG
     Route: 055
     Dates: start: 20080101, end: 20081001
  2. THEOPHYLLINE [Concomitant]
     Indication: LUNG DISORDER
  3. ALBUTEROL [Concomitant]
     Indication: LUNG DISORDER

REACTIONS (3)
  - ASTHENIA [None]
  - EYELID OEDEMA [None]
  - WHITE BLOOD CELL COUNT ABNORMAL [None]
